FAERS Safety Report 5600946-2 (Version None)
Quarter: 2008Q1

REPORT INFORMATION
  Report Type: 
  Country: None (occurrence: None)
  Receive Date: 20080124
  Receipt Date: 20080115
  Transmission Date: 20080703
  Serious: Yes (Hospitalization)
  Sender: FDA-Public Use
  Company Number: PHHO2007KR21132

PATIENT
  Age: 62 Year
  Sex: Male
  Weight: 72 kg

DRUGS (8)
  1. ZOMETA [Suspect]
     Indication: MULTIPLE MYELOMA
     Dosage: 4MG EVERY 3 WEEKS
     Route: 042
     Dates: start: 20071029, end: 20071220
  2. DEXAMETHASONE TAB [Suspect]
  3. THALIDOMIDE [Suspect]
  4. VITAMIN D [Concomitant]
  5. CALCIUM GLUCONATE [Concomitant]
  6. ASPIRIN [Concomitant]
  7. OMEPRAZOLE [Concomitant]
  8. NYSTATIN [Concomitant]

REACTIONS (3)
  - DYSPNOEA [None]
  - PULMONARY EMBOLISM [None]
  - VENOUS OCCLUSION [None]
